FAERS Safety Report 4382468-2 (Version None)
Quarter: 2004Q2

REPORT INFORMATION
  Report Type: 
  Country: None (occurrence: None)
  Receive Date: 20040617
  Receipt Date: 20040603
  Transmission Date: 20050107
  Serious: Yes (Disabling)
  Sender: FDA-Public Use
  Company Number: 2004AP03032

PATIENT
  Age: 75 Year
  Sex: Male
  Weight: 57 kg

DRUGS (8)
  1. OMEPRAZOLE [Suspect]
     Indication: REFLUX OESOPHAGITIS
     Dosage: 20 MG DAILY PO
     Route: 048
     Dates: start: 20031121, end: 20031212
  2. OMEPRAZOLE [Suspect]
     Indication: REFLUX OESOPHAGITIS
     Dosage: 10 MG DAILY PO
     Route: 048
     Dates: start: 20031213, end: 20040507
  3. VITAMIN C [Concomitant]
  4. CHOCOLA A [Concomitant]
  5. TAUROLIN [Concomitant]
  6. ETODOLAC [Concomitant]
  7. TERNELIN [Concomitant]
  8. MUCOSTA [Concomitant]

REACTIONS (13)
  - ARTHRALGIA [None]
  - BACK PAIN [None]
  - BLOOD CREATINE PHOSPHOKINASE INCREASED [None]
  - CONDITION AGGRAVATED [None]
  - DYSSTASIA [None]
  - HYPOREFLEXIA [None]
  - INTERVERTEBRAL DISCITIS [None]
  - LABORATORY TEST ABNORMAL [None]
  - LUMBAR SPINAL STENOSIS [None]
  - MUSCLE ATROPHY [None]
  - MUSCULAR WEAKNESS [None]
  - SPINAL MUSCULAR ATROPHY [None]
  - SPONDYLOSIS [None]
